FAERS Safety Report 4956526-5 (Version None)
Quarter: 2006Q1

REPORT INFORMATION
  Report Type: 
  Country: None (occurrence: None)
  Receive Date: 20060329
  Receipt Date: 20051007
  Transmission Date: 20060701
  Serious: Yes (Hospitalization)
  Sender: FDA-Public Use
  Company Number: US-MERCK-0510USA06407

PATIENT
  Age: 76 Year
  Sex: Female
  Weight: 75 kg

DRUGS (2)
  1. VIOXX [Suspect]
     Indication: ARTHRITIS
     Route: 048
     Dates: start: 20010305, end: 20040930
  2. VIOXX [Suspect]
     Indication: PAIN MANAGEMENT
     Route: 048
     Dates: start: 20010305, end: 20040930

REACTIONS (10)
  - ARTERIAL DISORDER [None]
  - ATRIAL FIBRILLATION [None]
  - BACK PAIN [None]
  - BRONCHITIS ACUTE [None]
  - CARDIAC DISORDER [None]
  - CARDIOVASCULAR DISORDER [None]
  - CHEST PAIN [None]
  - DYSPNOEA [None]
  - MYOCARDIAL INFARCTION [None]
  - PALPITATIONS [None]
